FAERS Safety Report 19374738 (Version 4)
Quarter: 2021Q3

REPORT INFORMATION
  Report Type: Spontaneous
  Country: US (occurrence: US)
  Receive Date: 20210604
  Receipt Date: 20210930
  Transmission Date: 20211014
  Serious: No
  Sender: FDA-Public Use
  Company Number: US-SA-2021SA184621

PATIENT
  Age: 12 Year
  Sex: Female

DRUGS (2)
  1. DUPIXENT [Suspect]
     Active Substance: DUPILUMAB
     Dosage: 200 MG, QOW
     Route: 058
     Dates: start: 2021
  2. DUPIXENT [Suspect]
     Active Substance: DUPILUMAB
     Indication: DERMATITIS ATOPIC
     Dosage: 400 MG, 1X
     Route: 058
     Dates: start: 202104, end: 202104

REACTIONS (9)
  - Miliaria [Unknown]
  - Injection site rash [Unknown]
  - Rash [Unknown]
  - Temperature intolerance [Unknown]
  - Injection site erythema [Unknown]
  - Urticaria thermal [Unknown]
  - Product use issue [Unknown]
  - Injection site reaction [Recovered/Resolved]
  - Injection site swelling [Unknown]

NARRATIVE: CASE EVENT DATE: 2021
